FAERS Safety Report 9045325 (Version 1)
Quarter: 2013Q1

REPORT INFORMATION
  Report Type: Spontaneous
  Country: US (occurrence: US)
  Receive Date: 20130131
  Receipt Date: 20130131
  Transmission Date: 20140127
  Serious: No
  Sender: FDA-Public Use
  Company Number: US-ASTRAZENECA-2013SE04400

PATIENT
  Age: 53 Year
  Sex: Female
  Weight: 61.2 kg

DRUGS (6)
  1. ARIMIDEX [Suspect]
     Indication: BREAST CANCER
     Route: 048
  2. SYMBICORT PMDI [Suspect]
     Indication: ASTHMA
     Route: 055
  3. TAMOXIFEN [Suspect]
     Route: 048
  4. CITALOPRAM [Concomitant]
  5. LORAZEPAM [Concomitant]
  6. ATROVENT [Concomitant]

REACTIONS (1)
  - Paraesthesia [Unknown]
